FAERS Safety Report 6657482-4 (Version None)
Quarter: 2010Q1

REPORT INFORMATION
  Report Type: 
  Country: None (occurrence: None)
  Receive Date: 20100330
  Receipt Date: 20100322
  Transmission Date: 20100710
  Serious: Yes (Other)
  Sender: FDA-Public Use
  Company Number: US-EISAI INC.-E3810-03634-SPO-US

PATIENT
  Sex: Female

DRUGS (9)
  1. PARIET (RABEPRAZOLE) [Suspect]
     Route: 048
     Dates: start: 20100319
  2. MEROPENEM [Concomitant]
  3. TEICOPLANIN [Concomitant]
  4. MORPHINE TARTRATE [Concomitant]
  5. CORTATE [Concomitant]
  6. CELEBREX [Concomitant]
  7. CALTRATE [Concomitant]
  8. OSTEOLIN [Concomitant]
  9. SLOW-K [Concomitant]

REACTIONS (1)
  - CONVULSION [None]
